FAERS Safety Report 5363053-2 (Version None)
Quarter: 2007Q2

REPORT INFORMATION
  Report Type: 
  Country: None (occurrence: None)
  Receive Date: 20070615
  Receipt Date: 20070606
  Transmission Date: 20071010
  Serious: Yes (Death)
  Sender: FDA-Public Use
  Company Number: ENC200700081

PATIENT
  Age: 75 Year
  Sex: Female

DRUGS (4)
  1. ARGATROBAN [Suspect]
     Indication: HEPARIN-INDUCED THROMBOCYTOPENIA
     Dosage: 2 MCG/KG/MIT, INTRVANEOUS
     Route: 042
     Dates: start: 20050412
  2. WARFARIN SODIUM [Suspect]
     Indication: ANTICOAGULANT THERAPY
     Dosage: 1 MG, QD
     Dates: start: 20050418
  3. HEPARIN [Concomitant]
  4. NOREPINEPHRINE 9NOREPINEPHRINE) [Concomitant]

REACTIONS (10)
  - ACTIVATED PARTIAL THROMBOPLASTIN TIME PROLONGED [None]
  - CARDIAC ARREST [None]
  - COAGULATION TIME PROLONGED [None]
  - FINGER AMPUTATION [None]
  - FOOT AMPUTATION [None]
  - GANGRENE [None]
  - GASTROINTESTINAL HAEMORRHAGE [None]
  - INTERNATIONAL NORMALISED RATIO INCREASED [None]
  - NECROSIS ISCHAEMIC [None]
  - PROTHROMBIN TIME PROLONGED [None]
